FAERS Safety Report 8308320-5 (Version None)
Quarter: 2012Q2

REPORT INFORMATION
  Report Type: 
  Country: None (occurrence: None)
  Receive Date: 20120424
  Receipt Date: 20120419
  Transmission Date: 20120825
  Serious: Yes (Death, Hospitalization, Other)
  Sender: FDA-Public Use
  Company Number: FR-PFIZER INC-2012097181

PATIENT
  Age: 20 Year
  Sex: Female

DRUGS (13)
  1. ZITHROMAX [Suspect]
     Indication: CYSTIC FIBROSIS
     Dosage: UNK
     Route: 048
  2. DOMPERIDONE [Concomitant]
     Indication: NAUSEA
     Dosage: UNK
     Dates: start: 20110913, end: 20110918
  3. MEBEVERINE [Concomitant]
     Dosage: UNK
     Dates: start: 20110913, end: 20110918
  4. UVESTEROL [Concomitant]
  5. VITAMIN K TAB [Concomitant]
  6. VITAMIN A [Concomitant]
  7. PULMOZYME [Concomitant]
     Dosage: 1
  8. CEFIXIME [Suspect]
     Indication: LUNG INFECTION
     Dosage: UNK
  9. TRIMEBUTINE [Concomitant]
     Dosage: UNK
     Dates: start: 20110913, end: 20110918
  10. COLCHICINE [Concomitant]
     Indication: CYSTIC FIBROSIS
  11. NASONEX [Concomitant]
     Indication: NASAL POLYPS
  12. CREON [Concomitant]
  13. TOCO [Concomitant]
     Dosage: 500 MG, UNK

REACTIONS (3)
  - BRONCHITIS [None]
  - CIRCULATORY COLLAPSE [None]
  - PSEUDOMEMBRANOUS COLITIS [None]
